FAERS Safety Report 23761903 (Version 1)
Quarter: 2024Q2

REPORT INFORMATION
  Report Type: Spontaneous
  Country: US (occurrence: None)
  Receive Date: 20240419
  Receipt Date: 20240419
  Transmission Date: 20240715
  Serious: Yes (Hospitalization)
  Sender: FDA-Public Use
  Company Number: None

PATIENT
  Age: 51 Year
  Sex: Male
  Weight: 93 kg

DRUGS (3)
  1. FLUOROURACIL [Suspect]
     Active Substance: FLUOROURACIL
     Dates: end: 20240409
  2. LEUCOVORIN CALCIUM [Suspect]
     Active Substance: LEUCOVORIN CALCIUM
     Dates: end: 20240409
  3. ELOXATIN [Suspect]
     Active Substance: OXALIPLATIN
     Dates: end: 20240409

REACTIONS (10)
  - Proctalgia [None]
  - Rectal tenesmus [None]
  - Rectal haemorrhage [None]
  - Dizziness [None]
  - Dyspnoea [None]
  - Fatigue [None]
  - Decreased appetite [None]
  - Abdominal distension [None]
  - Colitis [None]
  - Cystitis [None]

NARRATIVE: CASE EVENT DATE: 20240416
